FAERS Safety Report 10712944 (Version 4)
Quarter: 2017Q2

REPORT INFORMATION
  Report Type: Report from Study
  Country: JP (occurrence: JP)
  Receive Date: 20150115
  Receipt Date: 20170522
  Transmission Date: 20170829
  Serious: Yes (Other)
  Sender: FDA-Public Use
  Company Number: PHHY2014JP150779

PATIENT
  Age: 12 Year
  Sex: Female

DRUGS (11)
  1. AFINITOR [Suspect]
     Active Substance: EVEROLIMUS
     Dosage: 10 MG, QD
     Route: 048
     Dates: start: 20131111, end: 20131208
  2. AFINITOR [Suspect]
     Active Substance: EVEROLIMUS
     Dosage: 4 MG, UNK
     Route: 048
  3. PHENYTOIN. [Suspect]
     Active Substance: PHENYTOIN
     Indication: EPILEPSY
     Dosage: 250 MG, UNK
     Route: 048
  4. AFINITOR [Suspect]
     Active Substance: EVEROLIMUS
     Dosage: 12 MG, QD
     Route: 048
     Dates: start: 20131209, end: 20140209
  5. SODIUM VALPROATE [Suspect]
     Active Substance: VALPROATE SODIUM
     Indication: EPILEPSY
     Dosage: 300 MG, UNK
     Route: 048
  6. AZUNOL                             /00517002/ [Concomitant]
     Indication: PROPHYLAXIS
     Dosage: UNK, PRN
     Route: 049
     Dates: start: 20130729
  7. AFINITOR [Suspect]
     Active Substance: EVEROLIMUS
     Dosage: 8 MG, QD
     Route: 048
     Dates: start: 20131013, end: 20131110
  8. AFINITOR [Suspect]
     Active Substance: EVEROLIMUS
     Dosage: 14 MG, QD
     Route: 048
     Dates: start: 20140210, end: 20140623
  9. AFINITOR [Suspect]
     Active Substance: EVEROLIMUS
     Indication: TUBEROUS SCLEROSIS
     Dosage: 4 MG, QD
     Route: 048
     Dates: start: 20130723, end: 20130825
  10. AFINITOR [Suspect]
     Active Substance: EVEROLIMUS
     Indication: ASTROCYTOMA, LOW GRADE
     Dosage: 6 MG, QD
     Route: 048
     Dates: start: 20130826, end: 20131012
  11. AFINITOR [Suspect]
     Active Substance: EVEROLIMUS
     Dosage: 6 MG, UNK
     Route: 048

REACTIONS (12)
  - Menstruation irregular [Recovering/Resolving]
  - Gastrointestinal ulcer [Recovered/Resolved]
  - Inflammation [Unknown]
  - Stomatitis [Recovered/Resolved]
  - C-reactive protein increased [Recovered/Resolved]
  - Hypophagia [Unknown]
  - Protein urine [Recovering/Resolving]
  - Diarrhoea [Unknown]
  - Pyrexia [Unknown]
  - Gamma-glutamyltransferase increased [Not Recovered/Not Resolved]
  - Malignant neoplasm progression [Not Recovered/Not Resolved]
  - Abdominal pain [Recovering/Resolving]

NARRATIVE: CASE EVENT DATE: 20130729
